FAERS Safety Report 7763090-4 (Version None)
Quarter: 2011Q3

REPORT INFORMATION
  Report Type: 
  Country: None (occurrence: None)
  Receive Date: 20110920
  Receipt Date: 20101019
  Transmission Date: 20111222
  Serious: No
  Sender: FDA-Public Use
  Company Number: US-BAUSCH-2010BL005899

PATIENT
  Age: 68 Year
  Sex: Female

DRUGS (6)
  1. PILOCARPINE [Concomitant]
     Indication: SJOGREN'S SYNDROME
     Route: 048
  2. ASPIRIN [Concomitant]
     Indication: CARDIOVASCULAR EVENT PROPHYLAXIS
  3. ENDOCIN [Concomitant]
  4. ERYTHROCIN 1% [Suspect]
     Indication: SJOGREN'S SYNDROME
     Route: 047
     Dates: start: 20101018, end: 20101018
  5. LEVOTHYROXINE SODIUM [Concomitant]
     Indication: HYPOTHYROIDISM
  6. OMEPRAZOLE [Concomitant]
     Indication: GASTROOESOPHAGEAL REFLUX DISEASE

REACTIONS (2)
  - EYE PAIN [None]
  - EYE IRRITATION [None]
